FAERS Safety Report 8430032-8 (Version None)
Quarter: 2012Q2

REPORT INFORMATION
  Report Type: 
  Country: None (occurrence: None)
  Receive Date: 20120612
  Receipt Date: 20120607
  Transmission Date: 20120825
  Serious: Yes (Life-Threatening, Other)
  Sender: FDA-Public Use
  Company Number: IT-ROCHE-1070691

PATIENT
  Sex: Male

DRUGS (4)
  1. BINOCRIT [Suspect]
     Indication: ANAEMIA
     Route: 058
     Dates: start: 20120306, end: 20120501
  2. TELMISARTAN [Concomitant]
     Route: 050
     Dates: start: 20100420, end: 20120510
  3. COPEGUS [Suspect]
     Indication: HEPATITIS C
     Route: 048
     Dates: start: 20120215, end: 20120510
  4. PEGASYS [Concomitant]
     Dosage: 180 MICROGRAM
     Route: 065
     Dates: start: 20120215, end: 20120510

REACTIONS (2)
  - MYELODYSPLASTIC SYNDROME [None]
  - PANCYTOPENIA [None]
